FAERS Safety Report 6674651-8 (Version None)
Quarter: 2010Q2

REPORT INFORMATION
  Report Type: 
  Country: None (occurrence: None)
  Receive Date: 20100409
  Receipt Date: 20100331
  Transmission Date: 20101027
  Serious: Yes (Death, Hospitalization)
  Sender: FDA-Public Use
  Company Number: CA-JNJFOC-20100300933

PATIENT
  Sex: Male
  Weight: 56 kg

DRUGS (10)
  1. REMICADE [Suspect]
     Indication: CROHN'S DISEASE
     Route: 042
  2. IMURAN [Suspect]
     Indication: DRUG USE FOR UNKNOWN INDICATION
  3. CALCIUM [Concomitant]
  4. CALCITRIOL [Concomitant]
  5. VITAMIN B-12 [Concomitant]
  6. ERYTHROPOETIN [Concomitant]
  7. MAGNESIUM OXIDE [Concomitant]
  8. FLAGYL [Concomitant]
  9. MULTI-VITAMINS [Concomitant]
  10. SODIUM BICARBONATE [Concomitant]

REACTIONS (8)
  - CONFUSIONAL STATE [None]
  - DEATH [None]
  - DYSPHAGIA [None]
  - INFLAMMATION [None]
  - LETHARGY [None]
  - PLEURAL EFFUSION [None]
  - WEIGHT DECREASED [None]
  - WHITE BLOOD CELL COUNT DECREASED [None]
